FAERS Safety Report 23718265 (Version 1)
Quarter: 2024Q2

REPORT INFORMATION
  Report Type: Spontaneous
  Country: US (occurrence: US)
  Receive Date: 20240408
  Receipt Date: 20240408
  Transmission Date: 20240716
  Serious: Yes (Death)
  Sender: FDA-Public Use
  Company Number: US-PFIZER INC-PV202300122868

PATIENT
  Age: 73 Year
  Sex: Male

DRUGS (1)
  1. IBRANCE [Suspect]
     Active Substance: PALBOCICLIB
     Indication: Oesophageal carcinoma
     Dosage: TAKE 1 TABLET ONCE DAILY FOR 21 DAYS OF A 28-DAY CYCLE (3 WEEKS ON, 1 WEEK OFF)
     Route: 048
     Dates: start: 20230614, end: 20230705

REACTIONS (2)
  - Neoplasm progression [Fatal]
  - Off label use [Unknown]
